FAERS Safety Report 17631207 (Version 2)
Quarter: 2020Q2

REPORT INFORMATION
  Report Type: Report from Study
  Country: GB (occurrence: GB)
  Receive Date: 20200406
  Receipt Date: 20200622
  Transmission Date: 20200713
  Serious: Yes (Other)
  Sender: FDA-Public Use
  Company Number: GB-JNJFOC-20200339413

PATIENT
  Age: 6 Decade
  Sex: Male

DRUGS (23)
  1. ASPIRIN                            /00002701/ [Concomitant]
     Active Substance: ASPIRIN
  2. FLUDROXYCORTIDE [Concomitant]
  3. ISOSORBIDE. [Concomitant]
     Active Substance: ISOSORBIDE
  4. STELARA [Suspect]
     Active Substance: USTEKINUMAB
     Indication: PSORIASIS
     Route: 058
     Dates: start: 20191205
  5. AZITHROMYCIN ANHYDROUS. [Concomitant]
     Active Substance: AZITHROMYCIN ANHYDROUS
  6. FLUTICASONE. [Concomitant]
     Active Substance: FLUTICASONE
     Dosage: FLUTICASONE CHLORIDE
  7. SALBUTAMOL [Concomitant]
     Active Substance: ALBUTEROL
  8. TRAZODONE [Concomitant]
     Active Substance: TRAZODONE HYDROCHLORIDE
  9. CARBOCISTEINE [Concomitant]
     Active Substance: CARBOCYSTEINE
  10. METFORMIN [Concomitant]
     Active Substance: METFORMIN HYDROCHLORIDE
  11. CANAGLIFLOZIN [Concomitant]
     Active Substance: CANAGLIFLOZIN
  12. PERINDOPRIL [Concomitant]
     Active Substance: PERINDOPRIL
  13. ATENOLOL. [Concomitant]
     Active Substance: ATENOLOL
  14. MONTELUKAST [Concomitant]
     Active Substance: MONTELUKAST SODIUM
  15. OMEPRAZOLE. [Concomitant]
     Active Substance: OMEPRAZOLE
  16. COCODAMOL [Concomitant]
     Active Substance: ACETAMINOPHEN\CODEINE PHOSPHATE
  17. STELARA [Suspect]
     Active Substance: USTEKINUMAB
     Route: 058
     Dates: start: 20191213
  18. ATORVASTATIN [Concomitant]
     Active Substance: ATORVASTATIN
  19. GABAPENTIN. [Concomitant]
     Active Substance: GABAPENTIN
  20. NICARDIPINE [Concomitant]
     Active Substance: NICARDIPINE
  21. RANOLAZINE. [Concomitant]
     Active Substance: RANOLAZINE
  22. SPIRIVA [Concomitant]
     Active Substance: TIOTROPIUM BROMIDE MONOHYDRATE
  23. VENLAFAXINE [Concomitant]
     Active Substance: VENLAFAXINE HYDROCHLORIDE

REACTIONS (2)
  - Lower respiratory tract infection [Unknown]
  - Psoriasis [Unknown]

NARRATIVE: CASE EVENT DATE: 201912
